FAERS Safety Report 22014442 (Version 2)
Quarter: 2024Q1

REPORT INFORMATION
  Report Type: Spontaneous
  Country: US (occurrence: US)
  Receive Date: 20230221
  Receipt Date: 20240319
  Transmission Date: 20240409
  Serious: Yes (Other)
  Sender: FDA-Public Use
  Company Number: US-AMNEAL PHARMACEUTICALS-2023-AMRX-00572

PATIENT
  Age: 68 Year
  Sex: Male

DRUGS (9)
  1. BACLOFEN [Suspect]
     Active Substance: BACLOFEN
     Indication: Product used for unknown indication
     Dosage: UNK
     Route: 037
  2. BACLOFEN [Suspect]
     Active Substance: BACLOFEN
     Dosage: 600 MICROGRAM, DAILY
     Route: 037
  3. BACLOFEN [Suspect]
     Active Substance: BACLOFEN
     Dosage: 1617 MCG/ML, 322.3 MCG/DAY
     Route: 037
  4. FENTANYL [Concomitant]
     Active Substance: FENTANYL\FENTANYL CITRATE
     Indication: Product used for unknown indication
     Dosage: 16.5 MCG/ML
     Route: 065
  5. SUFENTA [Concomitant]
     Active Substance: SUFENTANIL CITRATE
     Indication: Product used for unknown indication
     Dosage: 2.5 MCG/ML
     Route: 065
  6. SUFENTA [Concomitant]
     Active Substance: SUFENTANIL CITRATE
     Dosage: 4.2 MCG/ML, 0.8372MCG/DAY
     Route: 065
  7. DILAUDID [Concomitant]
     Active Substance: HYDROMORPHONE HYDROCHLORIDE
     Indication: Product used for unknown indication
     Dosage: 1.25 MG/ML, 0.5MG/DAY
     Route: 065
  8. BUPIVACAINE [Concomitant]
     Active Substance: BUPIVACAINE
     Indication: Product used for unknown indication
     Dosage: 15MG/ML, 6MG/DAY
     Route: 065
  9. BUPIVACAINE [Concomitant]
     Active Substance: BUPIVACAINE
     Dosage: 2.7MG/ML, 0.5382MG/DAY
     Route: 065

REACTIONS (5)
  - Granuloma [Unknown]
  - Pain [Unknown]
  - Device breakage [Unknown]
  - Device dislocation [Unknown]
  - Device kink [Unknown]

NARRATIVE: CASE EVENT DATE: 20221201
